FAERS Safety Report 25805882 (Version 1)
Quarter: 2025Q3

REPORT INFORMATION
  Report Type: Spontaneous
  Country: CA (occurrence: CA)
  Receive Date: 20250916
  Receipt Date: 20250916
  Transmission Date: 20251020
  Serious: Yes (Hospitalization, Other)
  Sender: SPECGX
  Company Number: CA-SPECGX-T202501554

PATIENT
  Age: 38 Year
  Sex: Female
  Weight: 70 kg

DRUGS (17)
  1. METHADOSE [Suspect]
     Active Substance: METHADONE HYDROCHLORIDE
     Indication: Drug withdrawal maintenance therapy
     Dosage: 120 MILLIGRAM, QD
     Route: 048
     Dates: start: 2020
  2. TRAZODONE [Suspect]
     Active Substance: TRAZODONE HYDROCHLORIDE
     Indication: Insomnia
     Route: 048
  3. LOPERAMIDE [Concomitant]
     Active Substance: LOPERAMIDE
     Indication: Frequent bowel movements
     Route: 048
  4. LOPERAMIDE [Concomitant]
     Active Substance: LOPERAMIDE
     Route: 048
  5. LOPERAMIDE [Concomitant]
     Active Substance: LOPERAMIDE
     Route: 048
  6. CLONIDINE [Concomitant]
     Active Substance: CLONIDINE
     Indication: Product used for unknown indication
     Route: 048
  7. DIAZEPAM [Concomitant]
     Active Substance: DIAZEPAM
     Indication: Product used for unknown indication
     Route: 048
  8. DIAZEPAM [Concomitant]
     Active Substance: DIAZEPAM
     Route: 048
  9. HYDROXYZINE [Concomitant]
     Active Substance: HYDROXYZINE HYDROCHLORIDE
     Indication: Product used for unknown indication
     Route: 048
  10. VITAMINS [Concomitant]
     Active Substance: VITAMINS
     Indication: Product used for unknown indication
     Dosage: 1 DOSAGE FORM, QD
     Route: 048
  11. THIAMINE [Concomitant]
     Active Substance: THIAMINE
     Indication: Product used for unknown indication
     Dosage: 300 MILLIGRAM, QD
     Route: 048
  12. DIMENHYDRINATE [Concomitant]
     Active Substance: DIMENHYDRINATE
     Indication: Product used for unknown indication
     Route: 048
  13. RABEPRAZOLE [Concomitant]
     Active Substance: RABEPRAZOLE
     Indication: Product used for unknown indication
     Dosage: 20 MILLIGRAM, QD
     Route: 048
  14. ACETAMINOPHEN [Concomitant]
     Active Substance: ACETAMINOPHEN
     Indication: Product used for unknown indication
     Route: 048
  15. IBUPROFEN [Concomitant]
     Active Substance: IBUPROFEN
     Indication: Product used for unknown indication
     Route: 048
  16. MELATONIN [Concomitant]
     Active Substance: MELATONIN
     Indication: Product used for unknown indication
     Route: 048
  17. GABAPENTIN [Concomitant]
     Active Substance: GABAPENTIN
     Indication: Product used for unknown indication
     Dosage: 300 MILLIGRAM, TID
     Route: 048

REACTIONS (6)
  - Electrocardiogram QT prolonged [Recovered/Resolved]
  - Torsade de pointes [Recovered/Resolved]
  - Cardiac arrest [Recovered/Resolved]
  - Hypokalaemia [Recovered/Resolved]
  - Catheterisation cardiac [Unknown]
  - Cardioversion [Unknown]

NARRATIVE: CASE EVENT DATE: 20240201
